FAERS Safety Report 24811592 (Version 1)
Quarter: 2025Q1

REPORT INFORMATION
  Report Type: Report from Study
  Country: IE (occurrence: IE)
  Receive Date: 20250106
  Receipt Date: 20250106
  Transmission Date: 20250409
  Serious: Yes (Other)
  Sender: ALEXION PHARMACEUTICALS
  Company Number: IE-AstraZeneca-2024A181919

PATIENT
  Age: 76 Year

DRUGS (28)
  1. FASENRA [Suspect]
     Active Substance: BENRALIZUMAB
     Indication: Asthma
  2. FASENRA [Suspect]
     Active Substance: BENRALIZUMAB
     Route: 058
  3. FASENRA [Suspect]
     Active Substance: BENRALIZUMAB
  4. FASENRA [Suspect]
     Active Substance: BENRALIZUMAB
     Route: 058
  5. FASENRA [Suspect]
     Active Substance: BENRALIZUMAB
  6. FASENRA [Suspect]
     Active Substance: BENRALIZUMAB
     Route: 058
  7. FASENRA [Suspect]
     Active Substance: BENRALIZUMAB
     Route: 058
  8. FASENRA [Suspect]
     Active Substance: BENRALIZUMAB
  9. FASENRA [Suspect]
     Active Substance: BENRALIZUMAB
     Route: 058
  10. FASENRA [Suspect]
     Active Substance: BENRALIZUMAB
  11. FASENRA [Suspect]
     Active Substance: BENRALIZUMAB
     Route: 058
  12. FASENRA [Suspect]
     Active Substance: BENRALIZUMAB
  13. FASENRA [Suspect]
     Active Substance: BENRALIZUMAB
     Route: 058
  14. FASENRA [Suspect]
     Active Substance: BENRALIZUMAB
  15. FASENRA [Suspect]
     Active Substance: BENRALIZUMAB
  16. FASENRA [Suspect]
     Active Substance: BENRALIZUMAB
     Route: 058
  17. ALVESCO [Concomitant]
     Active Substance: CICLESONIDE
  18. SERETIDE [Concomitant]
     Active Substance: FLUTICASONE PROPIONATE\SALMETEROL XINAFOATE
  19. SPIRIVA [Concomitant]
     Active Substance: TIOTROPIUM BROMIDE MONOHYDRATE
  20. MONTELUKAST [Concomitant]
     Active Substance: MONTELUKAST
  21. ATORVASTATIN [Concomitant]
     Active Substance: ATORVASTATIN
  22. MIRTAZAPINE [Concomitant]
     Active Substance: MIRTAZAPINE
  23. DAPAGLIFLOZIN [Concomitant]
     Active Substance: DAPAGLIFLOZIN
  24. LOSEC [Concomitant]
     Active Substance: OMEPRAZOLE
  25. ASPIRIN [Concomitant]
     Active Substance: ASPIRIN
  26. FEXOFENADINE [Concomitant]
     Active Substance: FEXOFENADINE HYDROCHLORIDE
  27. COZATAN [Concomitant]
  28. BISOPROLOL [Concomitant]
     Active Substance: BISOPROLOL

REACTIONS (3)
  - Lower respiratory tract infection [Recovered/Resolved]
  - Asthma [Unknown]
  - Obstructive sleep apnoea syndrome [Unknown]
